FAERS Safety Report 11593500 (Version 3)
Quarter: 2015Q4

REPORT INFORMATION
  Report Type: Report from Study
  Country: US (occurrence: US)
  Receive Date: 20151005
  Receipt Date: 20151124
  Transmission Date: 20160304
  Serious: Yes (Hospitalization)
  Sender: FDA-Public Use
  Company Number: US-JNJFOC-20150926687

PATIENT
  Age: 67 Year
  Sex: Female
  Weight: 77.11 kg

DRUGS (20)
  1. REMICADE [Suspect]
     Active Substance: INFLIXIMAB
     Indication: ANKYLOSING SPONDYLITIS
     Route: 042
     Dates: start: 20150730
  2. LUNESTA [Concomitant]
     Active Substance: ESZOPICLONE
     Route: 065
  3. OMEGA-3 ACID [Concomitant]
     Route: 065
  4. RESTASIS [Concomitant]
     Active Substance: CYCLOSPORINE
     Route: 065
  5. LYRICA [Concomitant]
     Active Substance: PREGABALIN
     Route: 065
  6. GLUMETZA [Concomitant]
     Active Substance: METFORMIN HYDROCHLORIDE
     Route: 065
  7. MELOXICAM. [Concomitant]
     Active Substance: MELOXICAM
     Route: 065
  8. OXYCODONE HCL ER [Concomitant]
     Active Substance: OXYCODONE HYDROCHLORIDE
     Route: 065
  9. REMICADE [Suspect]
     Active Substance: INFLIXIMAB
     Indication: RHEUMATOID ARTHRITIS
     Route: 042
     Dates: start: 20150730
  10. FOLIC ACID. [Concomitant]
     Active Substance: FOLIC ACID
     Route: 065
  11. NITROFURANTOIN. [Concomitant]
     Active Substance: NITROFURANTOIN
     Route: 065
  12. OPANA [Concomitant]
     Active Substance: OXYMORPHONE HYDROCHLORIDE
     Route: 065
  13. REMICADE [Suspect]
     Active Substance: INFLIXIMAB
     Indication: OSTEOPOROSIS
     Route: 042
     Dates: start: 20150730
  14. ALPRAZOLAM. [Concomitant]
     Active Substance: ALPRAZOLAM
     Route: 065
  15. BYSTOLIC [Concomitant]
     Active Substance: NEBIVOLOL HYDROCHLORIDE
     Route: 065
  16. DIOVAN [Concomitant]
     Active Substance: VALSARTAN
     Route: 065
  17. MIRTAZAPINE. [Concomitant]
     Active Substance: MIRTAZAPINE
     Route: 065
  18. METHOTREXATE [Concomitant]
     Active Substance: METHOTREXATE
     Route: 065
  19. CYMBALTA [Concomitant]
     Active Substance: DULOXETINE HYDROCHLORIDE
     Route: 065
  20. GELNIQUE [Concomitant]
     Active Substance: OXYBUTYNIN\OXYBUTYNIN CHLORIDE
     Route: 065

REACTIONS (5)
  - Sepsis [Unknown]
  - Drug effect decreased [Unknown]
  - Off label use [Unknown]
  - Renal abscess [Unknown]
  - Renal cyst [Recovering/Resolving]

NARRATIVE: CASE EVENT DATE: 20150730
